FAERS Safety Report 5021373-5 (Version None)
Quarter: 2006Q2

REPORT INFORMATION
  Report Type: 
  Country: None (occurrence: None)
  Receive Date: 20060608
  Receipt Date: 20060420
  Transmission Date: 20061013
  Serious: No
  Sender: FDA-Public Use
  Company Number: US-BRISTOL-MYERS SQUIBB COMPANY-13353800

PATIENT
  Age: 60 Year
  Sex: Female
  Weight: 68 kg

DRUGS (7)
  1. CARBIDOPA AND LEVODOPA [Suspect]
     Indication: PARKINSON'S DISEASE
     Route: 048
     Dates: start: 20040101, end: 20060416
  2. PROZAC [Interacting]
     Route: 048
  3. XANAX [Concomitant]
     Route: 048
  4. PRILOSEC [Concomitant]
  5. ASPIRIN [Concomitant]
  6. TYLENOL (CAPLET) [Concomitant]
  7. MIRAPEX [Concomitant]

REACTIONS (14)
  - ABDOMINAL PAIN [None]
  - ABNORMAL DREAMS [None]
  - AGITATION [None]
  - ANXIETY [None]
  - CHEST DISCOMFORT [None]
  - DIARRHOEA [None]
  - DYSKINESIA [None]
  - FEELING HOT AND COLD [None]
  - GAIT DISTURBANCE [None]
  - GASTROOESOPHAGEAL REFLUX DISEASE [None]
  - HEADACHE [None]
  - HYPERTENSION [None]
  - NECK PAIN [None]
  - SHOULDER PAIN [None]
